FAERS Safety Report 8295365-7 (Version None)
Quarter: 2012Q2

REPORT INFORMATION
  Report Type: 
  Country: None (occurrence: None)
  Receive Date: 20120416
  Receipt Date: 20120405
  Transmission Date: 20120825
  Serious: Yes (Life-Threatening, Hospitalization)
  Sender: FDA-Public Use
  Company Number: CPS-2012-0010

PATIENT
  Age: 44 Year
  Sex: Female
  Weight: 90.7 kg

DRUGS (5)
  1. ALPRAZOLAM [Concomitant]
  2. OXYCODONE HCL [Suspect]
     Indication: PRODUCT USED FOR UNKNOWN INDICATION
     Dosage: 3 TABLETS, Q4H, ORAL UNK, ORAL
     Route: 048
     Dates: start: 20090101, end: 20120101
  3. DIAZEPAM [Concomitant]
  4. MORPHINE SULFATE [Suspect]
     Indication: PRODUCT USED FOR UNKNOWN INDICATION
     Dosage: 200 MG, TID, ORAL UNK, ORAL
     Route: 048
     Dates: start: 20090101, end: 20120101
  5. CARISOPRODOL [Concomitant]

REACTIONS (3)
  - RESPIRATORY FAILURE [None]
  - PNEUMONIA ASPIRATION [None]
  - MULTIPLE DRUG OVERDOSE [None]
